FAERS Safety Report 6057780-1 (Version None)
Quarter: 2009Q1

REPORT INFORMATION
  Report Type: 
  Country: None (occurrence: None)
  Receive Date: 20090129
  Receipt Date: 20090123
  Transmission Date: 20090719
  Serious: Yes (Other)
  Sender: FDA-Public Use
  Company Number: PHHY2009BR02609

PATIENT
  Age: 72 Year
  Sex: Female
  Weight: 68 kg

DRUGS (8)
  1. DIOVAN HCT [Suspect]
     Indication: HYPERTENSION
     Dosage: 80/12.5 MG DAILY
     Route: 048
  2. SIMVASTATIN [Concomitant]
     Indication: BLOOD CHOLESTEROL ABNORMAL
     Dosage: ONE TABLET DAILY
     Route: 048
  3. SERETIDE ^ALLEN + HANBURYS LTD^ [Concomitant]
     Indication: DYSPNOEA
     Dosage: BID
  4. GLICLAZIDE [Concomitant]
     Indication: CARDIAC DISORDER
     Dosage: ONE TABLET DAILY
     Route: 048
  5. GINKGO BILOBA [Concomitant]
     Indication: CARDIOVASCULAR DISORDER
     Dosage: 1 TABLET DAILY
     Route: 048
  6. BUPROPION HYDROCHLORIDE [Concomitant]
     Indication: DEPRESSION
     Dosage: 2 TABLETS DAILY
     Route: 048
  7. METFORMIN HYDROCHLORIDE [Concomitant]
     Indication: DIABETES MELLITUS
     Dosage: 2 TABLETS DAILY
     Route: 048
  8. BETASERC [Concomitant]
     Indication: LABYRINTHITIS
     Dosage: ONE TABLET DAILY
     Route: 048

REACTIONS (4)
  - BLOOD PRESSURE INCREASED [None]
  - HEADACHE [None]
  - LABYRINTHITIS [None]
  - RETCHING [None]
